FAERS Safety Report 7300826-0 (Version None)
Quarter: 2010Q4

REPORT INFORMATION
  Report Type: 
  Country: None (occurrence: None)
  Receive Date: 20101230
  Receipt Date: 20101230
  Transmission Date: 20110411
  Serious: Yes (Other)
  Sender: FDA-Public Use
  Company Number: MYAM-2010-001

PATIENT
  Sex: Female

DRUGS (3)
  1. MYAMBUTOL [Suspect]
     Indication: MYCOBACTERIAL INFECTION
  2. CLARITHROMYCIN [Concomitant]
  3. RIFAMPIN [Concomitant]

REACTIONS (1)
  - VISUAL ACUITY REDUCED [None]
